FAERS Safety Report 16267782 (Version 1)
Quarter: 2019Q2

REPORT INFORMATION
  Report Type: Spontaneous
  Country: IT (occurrence: IT)
  Receive Date: 20190503
  Receipt Date: 20190503
  Transmission Date: 20190711
  Serious: Yes (Other)
  Sender: FDA-Public Use
  Company Number: IT-HORIZON-PRE-0187-2019

PATIENT
  Age: 55 Year
  Sex: Female
  Weight: 67 kg

DRUGS (2)
  1. PREDNISONE. [Suspect]
     Active Substance: PREDNISONE
     Indication: ACUTE SINUSITIS
     Dosage: 25 MG DAILY
     Route: 048
     Dates: start: 20190410, end: 20190418
  2. UNIDROX 600 MG FILM-COATED TABLETS [Suspect]
     Active Substance: PRULIFLOXACIN
     Indication: ACUTE SINUSITIS
     Dosage: 600 MG DAILY
     Route: 048
     Dates: start: 20190410, end: 20190419

REACTIONS (1)
  - Joint dislocation [Unknown]

NARRATIVE: CASE EVENT DATE: 20190416
